FAERS Safety Report 8798722 (Version 2)
Quarter: 2012Q4

REPORT INFORMATION
  Report Type: 
  Country: US (occurrence: US)
  Receive Date: 20120920
  Receipt Date: 20121121
  Transmission Date: 20130627
  Serious: Yes (Other)
  Sender: FDA-Public Use
  Company Number: US-ELI_LILLY_AND_COMPANY-US201203000476

PATIENT
  Sex: Female

DRUGS (4)
  1. FORTEO [Suspect]
     Indication: OSTEOPOROSIS
     Dosage: 20 ug, qd
     Route: 058
  2. FORTEO [Suspect]
     Dosage: 20 ug, qd
     Route: 058
  3. FORTEO [Suspect]
     Dosage: 20 ug, qd
     Route: 058
  4. FORTEO [Suspect]
     Dosage: 20 ug, qd
     Route: 058

REACTIONS (8)
  - Cerebrovascular accident [Unknown]
  - Blindness [Unknown]
  - Back pain [Unknown]
  - Bone disorder [Unknown]
  - Pain [Unknown]
  - Headache [Unknown]
  - Headache [Recovered/Resolved]
  - Memory impairment [Unknown]
